FAERS Safety Report 11120959 (Version 1)
Quarter: 2015Q2

REPORT INFORMATION
  Report Type: Spontaneous
  Country: US (occurrence: None)
  Receive Date: 20150518
  Receipt Date: 20150518
  Transmission Date: 20150821
  Serious: Yes (Hospitalization)
  Sender: FDA-Public Use
  Company Number: None

PATIENT
  Age: 70 Year
  Sex: Male

DRUGS (1)
  1. ZYTIGA [Suspect]
     Active Substance: ABIRATERONE ACETATE
     Indication: PROSTATE CANCER
     Route: 048
     Dates: start: 20150220, end: 20150501

REACTIONS (4)
  - Therapy change [None]
  - Peripheral swelling [None]
  - Dyspnoea [None]
  - Muscular weakness [None]

NARRATIVE: CASE EVENT DATE: 20150514
